FAERS Safety Report 6030102-8 (Version None)
Quarter: 2009Q1

REPORT INFORMATION
  Report Type: 
  Country: None (occurrence: None)
  Receive Date: 20090107
  Receipt Date: 20080918
  Transmission Date: 20090719
  Serious: No
  Sender: FDA-Public Use
  Company Number: US-BAYER-200813833BCC

PATIENT
  Age: 67 Year
  Sex: Female
  Weight: 87 kg

DRUGS (4)
  1. ALEVE [Suspect]
     Indication: ARTHRALGIA
     Dosage: TOTAL DAILY DOSE: 440 MG  UNIT DOSE: 220 MG
     Dates: start: 20080917
  2. ATENOLOL [Concomitant]
  3. FOLIC ACID [Concomitant]
  4. ASPIRIN [Concomitant]

REACTIONS (1)
  - INSOMNIA [None]
